FAERS Safety Report 5796430-6 (Version None)
Quarter: 2008Q3

REPORT INFORMATION
  Report Type: 
  Country: None (occurrence: None)
  Receive Date: 20080701
  Receipt Date: 20080617
  Transmission Date: 20090109
  Serious: Yes (Other)
  Sender: FDA-Public Use
  Company Number: PHHY2008JP01966

PATIENT

DRUGS (3)
  1. DIOVAN [Suspect]
     Dosage: 40 MG PER DAY
     Route: 048
  2. DIOVAN [Suspect]
     Dosage: 20 MG PER DAY
     Route: 048
  3. KEISHIBUKURYOUGAN [Concomitant]

REACTIONS (2)
  - CHROMATURIA [None]
  - HAEMATURIA [None]
